FAERS Safety Report 12174910 (Version 4)
Quarter: 2017Q2

REPORT INFORMATION
  Report Type: Spontaneous
  Country: US (occurrence: US)
  Receive Date: 20160314
  Receipt Date: 20170427
  Transmission Date: 20170830
  Serious: Yes (Other)
  Sender: FDA-Public Use
  Company Number: US-ASTELLAS-2016US008968

PATIENT
  Age: 41 Year
  Sex: Male

DRUGS (1)
  1. PROGRAF [Suspect]
     Active Substance: TACROLIMUS\TACROLIMUS ANHYDROUS
     Indication: RENAL TRANSPLANT
     Route: 048
     Dates: start: 2005

REACTIONS (5)
  - Lung transplant rejection [Unknown]
  - Lung transplant [Recovered/Resolved]
  - Lung transplant [Unknown]
  - Renal transplant [Unknown]
  - Renal failure [Unknown]

NARRATIVE: CASE EVENT DATE: 20050511
